FAERS Safety Report 16159442 (Version 2)
Quarter: 2019Q2

REPORT INFORMATION
  Report Type: Spontaneous
  Country: US (occurrence: US)
  Receive Date: 20190404
  Receipt Date: 20190514
  Transmission Date: 20190711
  Serious: Yes (Hospitalization)
  Sender: FDA-Public Use
  Company Number: US-UPSHER-SMITH LABORATORIES, LLC-2019USL00175

PATIENT
  Age: 66 Year
  Sex: Male
  Weight: 92.52 kg

DRUGS (14)
  1. BACLOFEN. [Suspect]
     Active Substance: BACLOFEN
     Dosage: 5 MG, 4X/DAY
     Route: 048
  2. UNKNOWN MEDICATIONS FOR NERVES [Concomitant]
  3. PLAVIX [Concomitant]
     Active Substance: CLOPIDOGREL BISULFATE
     Dosage: 75 MG, 1X/DAY
     Route: 048
  4. TERAZOSIN [Concomitant]
     Active Substance: TERAZOSIN\TERAZOSIN HYDROCHLORIDE
     Dosage: 5 MG, 1X/DAY AT BEDTIME
     Route: 048
  5. CARVEDILOL. [Suspect]
     Active Substance: CARVEDILOL
     Indication: HYPERTENSION
     Dosage: 6.25 MG, 2X/DAY
     Route: 048
     Dates: end: 201903
  6. UNKNOWN BLOOD PRESSURE MEDICATIONS [Concomitant]
  7. UNKNOWN STROKE MEDICATIONS [Concomitant]
  8. UNKNOWN LIPID LOWERING AGENTS [Concomitant]
  9. CRESTOR [Concomitant]
     Active Substance: ROSUVASTATIN CALCIUM
     Dosage: 20 MG, 1X/DAY
     Route: 048
  10. CARVEDILOL. [Suspect]
     Active Substance: CARVEDILOL
     Dosage: 12.5 MG, 2X/DAY
     Route: 048
     Dates: start: 201903
  11. UNKNOWN ANTIPLATELET AGENTS [Concomitant]
  12. NEURONTIN [Concomitant]
     Active Substance: GABAPENTIN
     Dosage: 300 MG, 1X/DAY AT BEDTIME
     Route: 048
  13. ASPIRIN. [Concomitant]
     Active Substance: ASPIRIN
  14. UNKNOWN NITRATES [Concomitant]

REACTIONS (8)
  - Acute kidney injury [Recovering/Resolving]
  - Chest pain [Recovered/Resolved]
  - Nausea [Unknown]
  - Hypertension [Recovering/Resolving]
  - Dizziness [Unknown]
  - Underdose [Not Recovered/Not Resolved]
  - Hypertensive urgency [Recovered/Resolved]
  - Acute left ventricular failure [Unknown]

NARRATIVE: CASE EVENT DATE: 201811
